FAERS Safety Report 16445882 (Version 2)
Quarter: 2023Q1

REPORT INFORMATION
  Report Type: Report from Study
  Country: US (occurrence: US)
  Receive Date: 20190618
  Receipt Date: 20230322
  Transmission Date: 20230417
  Serious: Yes (Hospitalization, Other)
  Sender: FDA-Public Use
  Company Number: US-SHIRE-US201919357

PATIENT
  Age: 62 Year
  Sex: Female

DRUGS (6)
  1. PARATHYROID HORMONE [Suspect]
     Active Substance: PARATHYROID HORMONE
     Indication: Product used for unknown indication
     Dosage: UNK UNK, QD
     Route: 050
     Dates: start: 20190307
  2. PARATHYROID HORMONE [Suspect]
     Active Substance: PARATHYROID HORMONE
     Indication: Product used for unknown indication
     Dosage: UNK UNK, QD
     Route: 050
     Dates: start: 20190307
  3. PARATHYROID HORMONE [Suspect]
     Active Substance: PARATHYROID HORMONE
     Indication: Product used for unknown indication
     Dosage: UNK UNK, QD
     Route: 050
     Dates: start: 20190307
  4. PARATHYROID HORMONE [Suspect]
     Active Substance: PARATHYROID HORMONE
     Dosage: UNK
     Route: 058
     Dates: start: 20190307
  5. PARATHYROID HORMONE [Suspect]
     Active Substance: PARATHYROID HORMONE
     Dosage: UNK
     Route: 058
     Dates: start: 20190307
  6. PARATHYROID HORMONE [Suspect]
     Active Substance: PARATHYROID HORMONE
     Dosage: UNK
     Route: 058
     Dates: start: 20190307

REACTIONS (3)
  - COVID-19 pneumonia [Unknown]
  - Pain in extremity [Unknown]
  - Arthralgia [Unknown]

NARRATIVE: CASE EVENT DATE: 20190605
